FAERS Safety Report 17364115 (Version 1)
Quarter: 2020Q1

REPORT INFORMATION
  Report Type: Spontaneous
  Country: DE (occurrence: DE)
  Receive Date: 20200204
  Receipt Date: 20200204
  Transmission Date: 20200409
  Serious: Yes (Other)
  Sender: FDA-Public Use
  Company Number: DE-AUROBINDO-AUR-APL-2018-052250

PATIENT
  Age: 48 Year
  Sex: Male
  Weight: 76 kg

DRUGS (31)
  1. FOLINIC ACID [Suspect]
     Active Substance: LEUCOVORIN
     Dosage: 790 MILLIGRAM
     Route: 065
     Dates: start: 20190226
  2. OXALIPLATIN. [Suspect]
     Active Substance: OXALIPLATIN
     Dosage: 135 MILLIGRAM
     Route: 065
     Dates: start: 20190723
  3. FLUOROURACIL. [Suspect]
     Active Substance: FLUOROURACIL
     Dosage: 2400 MILLIGRAM
     Route: 042
     Dates: start: 20190326
  4. VECTIBIX [Suspect]
     Active Substance: PANITUMUMAB
     Dosage: 480 MILLIGRAM
     Route: 042
     Dates: start: 20190226
  5. DEXPANTHENOL. [Concomitant]
     Active Substance: DEXPANTHENOL
     Indication: PARONYCHIA
     Dosage: 50 MILLIGRAM, AS NECESSARY
     Route: 061
     Dates: start: 20180627
  6. FOLINIC ACID [Suspect]
     Active Substance: LEUCOVORIN
     Indication: COLORECTAL CANCER METASTATIC
     Dosage: 780 MILLIGRAM
     Route: 065
     Dates: start: 20180516
  7. OXALIPLATIN. [Suspect]
     Active Substance: OXALIPLATIN
     Indication: COLORECTAL CANCER METASTATIC
     Dosage: 165 MILLIGRAM
     Route: 065
     Dates: start: 20180516
  8. DOXY M [Concomitant]
     Indication: PROPHYLAXIS
     Dosage: 100 MILLIGRAM, ONCE A DAY, 100 MG, QD
     Route: 048
     Dates: start: 20180516
  9. OXALIPLATIN. [Suspect]
     Active Substance: OXALIPLATIN
     Dosage: 135 MILLIGRAM
     Route: 065
     Dates: start: 20190226
  10. FLUOROURACIL. [Suspect]
     Active Substance: FLUOROURACIL
     Dosage: 4750 MILLIGRAM
     Route: 042
     Dates: start: 20190226
  11. VECTIBIX [Suspect]
     Active Substance: PANITUMUMAB
     Dosage: 480 MILLIGRAM
     Route: 042
     Dates: start: 20190903
  12. PLIAZON [Concomitant]
     Indication: PROPHYLAXIS
     Dosage: AS NECESSARY
     Route: 061
     Dates: start: 20180516
  13. FOLINIC ACID [Suspect]
     Active Substance: LEUCOVORIN
     Dosage: 790 MILLIGRAM
     Route: 065
     Dates: start: 20190723
  14. FOLINIC ACID [Suspect]
     Active Substance: LEUCOVORIN
     Dosage: 400 MILLIGRAM
     Route: 065
     Dates: start: 20190326
  15. FLUOROURACIL. [Suspect]
     Active Substance: FLUOROURACIL
     Dosage: 4750 MILLIGRAM
     Route: 042
     Dates: start: 20190723
  16. BETAISODONA [Concomitant]
     Active Substance: POVIDONE-IODINE
     Indication: PARONYCHIA
     Dosage: UNK UNK, AS NECESSARY
     Route: 061
     Dates: start: 20180718
  17. GLANDOMED [Concomitant]
     Indication: PROPHYLAXIS
     Dosage: 20 MILLILITER, TWO TIMES A DAY(40 ML,ONCE A DAY)
     Route: 048
     Dates: start: 20180516
  18. MOVICOL [Concomitant]
     Active Substance: POLYETHYLENE GLYCOL 3350\POTASSIUM CHLORIDE\SODIUM BICARBONATE\SODIUM CHLORIDE
     Dosage: 13.7 MILLIGRAM, TWO TIMES A DAY, 13.7 MG, BID
     Route: 048
     Dates: start: 20180716
  19. BEPANTHEN [Concomitant]
     Indication: PARONYCHIA
     Dosage: UNK UNK, AS NECESSARY
     Route: 061
     Dates: start: 20180627
  20. FLUOROURACIL. [Suspect]
     Active Substance: FLUOROURACIL
     Dosage: 400 MILLIGRAM
     Route: 040
     Dates: start: 20190326
  21. FERROSANOL [Concomitant]
     Active Substance: FERROUS GLUCONATE
     Indication: ANAEMIA
     Dosage: 80 MG TID-100 MG QD
     Route: 048
     Dates: start: 20180514
  22. FLUOROURACIL. [Suspect]
     Active Substance: FLUOROURACIL
     Dosage: 800 MILLIGRAM
     Route: 040
     Dates: start: 20190723
  23. OXALIPLATIN. [Suspect]
     Active Substance: OXALIPLATIN
     Dosage: 85 MILLIGRAM
     Route: 065
     Dates: start: 20190326
  24. VECTIBIX [Suspect]
     Active Substance: PANITUMUMAB
     Indication: COLORECTAL CANCER METASTATIC
     Dosage: 460 MILLIGRAM
     Route: 042
     Dates: start: 20180516
  25. VECTIBIX [Suspect]
     Active Substance: PANITUMUMAB
     Dosage: 6 MILLIGRAM
     Route: 042
     Dates: start: 20190326
  26. MONO EMBOLEX [Concomitant]
     Active Substance: CERTOPARIN SODIUM
     Indication: PROPHYLAXIS
     Dosage: 3000 INTERNATIONAL UNIT, ONCE A DAY, 3000 IU, QD
     Route: 058
     Dates: start: 20180412
  27. VIGANTOL [Concomitant]
     Indication: PRODUCT USED FOR UNKNOWN INDICATION
     Dosage: 1000 INTERNATIONAL UNIT, ONCE A DAY, 1000 IU, QD
     Route: 048
     Dates: start: 20180518
  28. FLUOROURACIL. [Suspect]
     Active Substance: FLUOROURACIL
     Indication: COLORECTAL CANCER METASTATIC
     Dosage: 4650 MILLIGRAM
     Route: 042
     Dates: start: 20180516
  29. FLUOROURACIL. [Suspect]
     Active Substance: FLUOROURACIL
     Dosage: 800 MILLIGRAM
     Route: 040
     Dates: start: 20180516
  30. LEVOFLOXACIN. [Concomitant]
     Active Substance: LEVOFLOXACIN
     Indication: INFECTION
     Dosage: 1000 MILLIGRAM, ONCE A DAY, 500 MG, BID
     Route: 048
     Dates: start: 20180530, end: 20180605
  31. MOVICOL [Concomitant]
     Active Substance: POLYETHYLENE GLYCOL 3350\POTASSIUM CHLORIDE\SODIUM BICARBONATE\SODIUM CHLORIDE
     Indication: CONSTIPATION
     Dosage: 13.7 MILLIGRAM, TWO TIMES A DAY, 13.7 MG, BID
     Route: 048
     Dates: start: 20180716, end: 20180727

REACTIONS (3)
  - Dry eye [Recovered/Resolved]
  - Vision blurred [Recovered/Resolved]
  - Dermatitis acneiform [Recovered/Resolved]

NARRATIVE: CASE EVENT DATE: 20181009
